FAERS Safety Report 20651782 (Version 1)
Quarter: 2022Q1

REPORT INFORMATION
  Report Type: Spontaneous
  Country: IT (occurrence: IT)
  Receive Date: 20220330
  Receipt Date: 20220330
  Transmission Date: 20220424
  Serious: Yes (Other)
  Sender: FDA-Public Use
  Company Number: IT-ABBVIE-22K-083-4336880-00

PATIENT
  Age: 56 Year
  Sex: Male

DRUGS (6)
  1. VALPROATE SODIUM [Suspect]
     Active Substance: VALPROATE SODIUM
     Indication: Psychomotor hyperactivity
     Route: 048
     Dates: start: 20200604, end: 20200907
  2. OLANZAPINE [Suspect]
     Active Substance: OLANZAPINE
     Indication: Psychomotor hyperactivity
     Route: 048
     Dates: start: 20200221, end: 20200810
  3. DELORAZEPAM [Concomitant]
     Active Substance: DELORAZEPAM
     Indication: Anxiety
  4. NORVASC [Concomitant]
     Active Substance: AMLODIPINE BESYLATE
     Indication: Hypertension
  5. BISOPROLOL [Concomitant]
     Active Substance: BISOPROLOL
     Indication: Cardiac failure chronic
  6. EDOXABAN TOSYLATE [Concomitant]
     Active Substance: EDOXABAN TOSYLATE
     Indication: Atrial fibrillation

REACTIONS (2)
  - Neutropenia [Recovered/Resolved]
  - Leukopenia [Recovered/Resolved]

NARRATIVE: CASE EVENT DATE: 20200804
